FAERS Safety Report 7226225-8 (Version None)
Quarter: 2011Q1

REPORT INFORMATION
  Report Type: 
  Country: None (occurrence: None)
  Receive Date: 20110114
  Receipt Date: 20110104
  Transmission Date: 20110831
  Serious: Yes (Hospitalization)
  Sender: FDA-Public Use
  Company Number: PHHY2011FR00693

PATIENT
  Sex: Male

DRUGS (4)
  1. DEPAKENE [Concomitant]
     Indication: EPILEPSY
     Dosage: 500 MG, BID
  2. TEGRETOL [Suspect]
     Indication: EPILEPSY
     Dosage: 600 MG, BID
     Route: 048
     Dates: start: 20100924, end: 20101002
  3. ALEPSAL [Suspect]
     Dosage: 100 MG, QD
  4. RIVOTRIL [Concomitant]
     Indication: EPILEPSY
     Dosage: 2 MG, DAILY

REACTIONS (3)
  - NYSTAGMUS [None]
  - ANTICONVULSANT DRUG LEVEL INCREASED [None]
  - CEREBELLAR SYNDROME [None]
